FAERS Safety Report 19732802 (Version 2)
Quarter: 2021Q3

REPORT INFORMATION
  Report Type: Spontaneous
  Country: US (occurrence: US)
  Receive Date: 20210823
  Receipt Date: 20210915
  Transmission Date: 20211014
  Serious: No
  Sender: FDA-Public Use
  Company Number: US-SA-2021SA273834

PATIENT
  Age: 54 Year
  Sex: Female

DRUGS (2)
  1. DUPIXENT [Suspect]
     Active Substance: DUPILUMAB
     Dosage: 300 MG, QOW
     Route: 058
     Dates: start: 20210728
  2. DUPIXENT [Suspect]
     Active Substance: DUPILUMAB
     Indication: DERMATOMYOSITIS
     Dosage: 2 DF, 1X
     Dates: start: 2021, end: 2021

REACTIONS (5)
  - Dry eye [Unknown]
  - Eye irritation [Unknown]
  - Flatulence [Unknown]
  - Insomnia [Unknown]
  - Product use in unapproved indication [Unknown]

NARRATIVE: CASE EVENT DATE: 2021
